FAERS Safety Report 5216449-3 (Version None)
Quarter: 2007Q1

REPORT INFORMATION
  Report Type: 
  Country: None (occurrence: None)
  Receive Date: 20070118
  Receipt Date: 20070105
  Transmission Date: 20070707
  Serious: Yes (Hospitalization)
  Sender: FDA-Public Use
  Company Number: DISFR-07-0027

PATIENT
  Age: 59 Year
  Sex: Male
  Weight: 76 kg

DRUGS (15)
  1. DIPRIVAN [Suspect]
     Indication: DRUG USE FOR UNKNOWN INDICATION
     Dosage: INTRAVENOUS
     Route: 042
     Dates: start: 20060215
  2. NEXIUM [Suspect]
     Indication: DRUG USE FOR UNKNOWN INDICATION
     Dosage: 40 MG (QD), ORAL
     Route: 048
     Dates: start: 20060215, end: 20060217
  3. NEXIUM [Suspect]
     Indication: DRUG USE FOR UNKNOWN INDICATION
     Dosage: 40 MG (QD), ORAL
     Route: 048
     Dates: start: 20060221
  4. KARDEGIC (ACETYLSALICYLATE LYSINE) [Suspect]
     Indication: DRUG USE FOR UNKNOWN INDICATION
     Dosage: -SEE IMAGE
     Route: 048
     Dates: end: 20060214
  5. KARDEGIC (ACETYLSALICYLATE LYSINE) [Suspect]
     Indication: DRUG USE FOR UNKNOWN INDICATION
     Dosage: -SEE IMAGE
     Route: 048
     Dates: start: 20060215
  6. LOVENOX [Suspect]
     Indication: DRUG USE FOR UNKNOWN INDICATION
     Dosage: SUBCUTANEOUS
     Route: 058
     Dates: start: 20060215
  7. SUFENTA [Suspect]
     Indication: DRUG USE FOR UNKNOWN INDICATION
     Dosage: INTRAVENOUS
     Route: 042
     Dates: start: 20060215
  8. ATORVASTATIN CALCIUM [Suspect]
     Indication: DRUG USE FOR UNKNOWN INDICATION
     Dosage: 80 MG (QD), ORAL
     Route: 048
     Dates: start: 20060221, end: 20060312
  9. ACTRAPID (INSULIN HUMAN) [Suspect]
     Indication: DRUG USE FOR UNKNOWN INDICATION
     Dosage: UNKNOWN
     Dates: start: 20060215
  10. MOPRAL (OMEPRAZOLE) [Concomitant]
  11. PANTOPRAZOLE SODIUM [Concomitant]
  12. HYDROCORTISONE E HEMISUCCINATE (METHYLPREDNISOLONE HEMISUCCINATE) [Concomitant]
  13. CORDARONE [Concomitant]
  14. TAZOCILLINE (PIP/TAZO) [Concomitant]
  15. AMIKACIN [Concomitant]

REACTIONS (7)
  - ANURIA [None]
  - BACTERIAL INFECTION [None]
  - HAEMODIALYSIS [None]
  - LIVER DISORDER [None]
  - METABOLIC ACIDOSIS [None]
  - RHABDOMYOLYSIS [None]
  - TROPONIN T INCREASED [None]
